FAERS Safety Report 16478706 (Version 2)
Quarter: 2019Q3

REPORT INFORMATION
  Report Type: Report from Study
  Country: None (occurrence: US)
  Receive Date: 20190626
  Receipt Date: 20190930
  Transmission Date: 20191004
  Serious: Yes (Hospitalization)
  Sender: FDA-Public Use
  Company Number: US-ABBVIE-18K-163-2495325-00

PATIENT
  Age: 29 Year
  Sex: Female

DRUGS (3)
  1. HUMIRA [Suspect]
     Active Substance: ADALIMUMAB
     Indication: ANKYLOSING SPONDYLITIS
     Route: 058
     Dates: start: 20180911, end: 201811
  2. HUMIRA [Suspect]
     Active Substance: ADALIMUMAB
     Route: 058
     Dates: start: 201812, end: 20190307
  3. HUMIRA [Suspect]
     Active Substance: ADALIMUMAB
     Route: 058
     Dates: start: 20190621, end: 20190828

REACTIONS (22)
  - Dysstasia [Not Recovered/Not Resolved]
  - Wrong technique in product usage process [Unknown]
  - Tooth infection [Recovering/Resolving]
  - Joint range of motion decreased [Not Recovered/Not Resolved]
  - Musculoskeletal stiffness [Unknown]
  - Lung infection [Recovered/Resolved]
  - Fatigue [Unknown]
  - Swelling [Unknown]
  - Lower respiratory tract infection [Unknown]
  - Bronchitis [Recovering/Resolving]
  - Arthralgia [Unknown]
  - Neck pain [Unknown]
  - Drug ineffective [Unknown]
  - Sinusitis [Unknown]
  - Temporomandibular joint syndrome [Recovering/Resolving]
  - Tenderness [Not Recovered/Not Resolved]
  - Lung infection [Recovering/Resolving]
  - Joint swelling [Unknown]
  - Mobility decreased [Not Recovered/Not Resolved]
  - Back pain [Unknown]
  - Hysterectomy [Unknown]
  - Discomfort [Not Recovered/Not Resolved]

NARRATIVE: CASE EVENT DATE: 201809
